FAERS Safety Report 24429237 (Version 1)
Quarter: 2024Q4

REPORT INFORMATION
  Report Type: Spontaneous
  Country: US (occurrence: US)
  Receive Date: 20241011
  Receipt Date: 20241011
  Transmission Date: 20250115
  Serious: No
  Sender: BAUSCH AND LOMB
  Company Number: US-BAUSCH-BL-2024-015080

PATIENT

DRUGS (1)
  1. NASALCROM [Suspect]
     Active Substance: CROMOLYN SODIUM
     Indication: Multiple allergies
     Dosage: USED FOUR TIMES DAILY AND DECREASE TO TWICE DAILY.
     Route: 045

REACTIONS (4)
  - Abdominal discomfort [Unknown]
  - Dysgeusia [Recovered/Resolved]
  - Taste disorder [Recovered/Resolved]
  - Inappropriate schedule of product administration [Unknown]
